FAERS Safety Report 6211418-9 (Version None)
Quarter: 2009Q2

REPORT INFORMATION
  Report Type: 
  Country: None (occurrence: None)
  Receive Date: 20090602
  Receipt Date: 20090520
  Transmission Date: 20091009
  Serious: Yes (Hospitalization)
  Sender: FDA-Public Use
  Company Number: FR-ELI_LILLY_AND_COMPANY-FR200905003982

PATIENT
  Sex: Male

DRUGS (1)
  1. ALIMTA [Suspect]
     Indication: LUNG NEOPLASM MALIGNANT
     Dosage: 910 MG, UNKNOWN
     Route: 042
     Dates: start: 20090326, end: 20090326

REACTIONS (5)
  - ANGIOEDEMA [None]
  - APHTHOUS STOMATITIS [None]
  - FATIGUE [None]
  - IMPLANT SITE INFLAMMATION [None]
  - URINE ABNORMALITY [None]
